FAERS Safety Report 8230535-5 (Version None)
Quarter: 2012Q1

REPORT INFORMATION
  Report Type: 
  Country: None (occurrence: None)
  Receive Date: 20120323
  Receipt Date: 20120317
  Transmission Date: 20120608
  Serious: Yes (Hospitalization)
  Sender: FDA-Public Use
  Company Number: US-ABBOTT-12P-163-0913446-00

PATIENT
  Sex: Male

DRUGS (1)
  1. HUMIRA [Suspect]
     Indication: PSORIATIC ARTHROPATHY
     Route: 058
     Dates: start: 20111101, end: 20120225

REACTIONS (4)
  - OROPHARYNGEAL BLISTERING [None]
  - PHARYNGITIS [None]
  - PHARYNGEAL OEDEMA [None]
  - WHITE BLOOD CELL COUNT DECREASED [None]
